FAERS Safety Report 24035007 (Version 3)
Quarter: 2024Q3

REPORT INFORMATION
  Report Type: Spontaneous
  Country: BE (occurrence: BE)
  Receive Date: 20240701
  Receipt Date: 20240723
  Transmission Date: 20241017
  Serious: No
  Sender: JOHNSON AND JOHNSON
  Company Number: BE-JNJFOC-20240666584

PATIENT

DRUGS (4)
  1. RISPERDAL CONSTA [Suspect]
     Active Substance: RISPERIDONE
     Indication: Product used for unknown indication
     Route: 030
  2. RISPERDAL CONSTA [Suspect]
     Active Substance: RISPERIDONE
  3. RISPERDAL CONSTA [Suspect]
     Active Substance: RISPERIDONE
  4. RISPERDAL CONSTA [Suspect]
     Active Substance: RISPERIDONE

REACTIONS (2)
  - Device leakage [Unknown]
  - Product dose omission issue [Unknown]
